FAERS Safety Report 11589126 (Version 1)
Quarter: 2015Q4

REPORT INFORMATION
  Report Type: Spontaneous
  Country: US (occurrence: None)
  Receive Date: 20151001
  Receipt Date: 20151001
  Transmission Date: 20160304
  Serious: Yes (Life-Threatening, Hospitalization)
  Sender: FDA-Public Use
  Company Number: None

PATIENT
  Age: 61 Year
  Sex: Female
  Weight: 72.1 kg

DRUGS (2)
  1. CEFEPIME [Suspect]
     Active Substance: CEFEPIME HYDROCHLORIDE
     Indication: INFECTION
     Dosage: 6600 MG ( 2X 300MG)
     Route: 048
     Dates: start: 20150920, end: 20150926
  2. LEVOFLOXACIN 750 MG [Suspect]
     Active Substance: LEVOFLOXACIN
     Indication: INFECTION
     Dosage: 600 MG QD
     Route: 048
     Dates: start: 20150920, end: 20150926

REACTIONS (2)
  - Clostridium difficile infection [None]
  - Megacolon [None]

NARRATIVE: CASE EVENT DATE: 20150927
